FAERS Safety Report 7657142-7 (Version None)
Quarter: 2011Q3

REPORT INFORMATION
  Report Type: 
  Country: None (occurrence: None)
  Receive Date: 20110804
  Receipt Date: 20110513
  Transmission Date: 20111222
  Serious: No
  Sender: FDA-Public Use
  Company Number: US-GLAXOSMITHKLINE-A0927310A

PATIENT
  Age: 49 Year
  Sex: Female

DRUGS (3)
  1. NEBULIZER [Concomitant]
  2. ADVAIR DISKUS 100/50 [Suspect]
     Indication: ASTHMA
     Dosage: 2SPR TWICE PER DAY
     Route: 055
     Dates: start: 20100401
  3. VENTOLIN HFA [Suspect]
     Indication: ASTHMA
     Dosage: 1SPR AS REQUIRED
     Route: 055
     Dates: start: 20100401

REACTIONS (2)
  - DRUG INEFFECTIVE [None]
  - RESPIRATORY TRACT INFECTION VIRAL [None]
